FAERS Safety Report 21249541 (Version 1)
Quarter: 2022Q3

REPORT INFORMATION
  Report Type: Spontaneous
  Country: CN (occurrence: CN)
  Receive Date: 20220824
  Receipt Date: 20220824
  Transmission Date: 20221027
  Serious: Yes (Other)
  Sender: FDA-Public Use
  Company Number: CN-PFIZER INC-202201083367

PATIENT
  Age: 78 Year
  Sex: Male

DRUGS (1)
  1. ZOLOFT [Suspect]
     Active Substance: SERTRALINE HYDROCHLORIDE
     Dosage: 150 MG, 1X/DAY
     Route: 048
     Dates: start: 2014

REACTIONS (6)
  - Hallucination [Unknown]
  - Sleep talking [Unknown]
  - Aggression [Unknown]
  - Confusional state [Recovered/Resolved]
  - Malaise [Recovered/Resolved]
  - Insomnia [Unknown]
